FAERS Safety Report 4569752-4 (Version None)
Quarter: 2005Q1

REPORT INFORMATION
  Report Type: 
  Country: None (occurrence: None)
  Receive Date: 20050131
  Receipt Date: 20050117
  Transmission Date: 20050727
  Serious: Yes (Disabling)
  Sender: FDA-Public Use
  Company Number: TPA2005A00001

PATIENT
  Age: 46 Year
  Sex: Female
  Weight: 107.5025 kg

DRUGS (7)
  1. ACTOS [Suspect]
     Indication: DIABETES MELLITUS NON-INSULIN-DEPENDENT
     Dosage: 30 MG, 1 IN 1 D, PER ORAL
     Route: 048
     Dates: start: 20041028, end: 20041230
  2. NEXIUM [Concomitant]
  3. DETROL LA [Concomitant]
  4. GIPIZIDE ER (GLIPIZIDE) [Concomitant]
  5. CHEWABLE ASA (ACETYLSALICYLIC ACID) [Concomitant]
  6. GLUCOTROL [Concomitant]
  7. CELEXA [Concomitant]

REACTIONS (13)
  - ABASIA [None]
  - BLADDER DISTENSION [None]
  - CHEST PAIN [None]
  - CONDITION AGGRAVATED [None]
  - DIZZINESS [None]
  - GLOSSODYNIA [None]
  - HEADACHE [None]
  - HYPOAESTHESIA [None]
  - OEDEMA PERIPHERAL [None]
  - SWOLLEN TONGUE [None]
  - URINARY INCONTINENCE [None]
  - VISION BLURRED [None]
  - WEIGHT INCREASED [None]
